FAERS Safety Report 7103879-8 (Version None)
Quarter: 2010Q4

REPORT INFORMATION
  Report Type: 
  Country: None (occurrence: None)
  Receive Date: 20101115
  Receipt Date: 20101109
  Transmission Date: 20110411
  Serious: Yes (Other)
  Sender: FDA-Public Use
  Company Number: AU-PFIZER INC-2010145042

PATIENT
  Sex: Male

DRUGS (1)
  1. CAVERJECT IMPULSE [Suspect]
     Dosage: 10 UG, UNK
     Route: 017

REACTIONS (2)
  - INJURY ASSOCIATED WITH DEVICE [None]
  - SYRINGE ISSUE [None]
